FAERS Safety Report 9472523 (Version 1)
Quarter: 2013Q3

REPORT INFORMATION
  Report Type: Spontaneous
  Country: US (occurrence: None)
  Receive Date: 20130821
  Receipt Date: 20130821
  Transmission Date: 20140515
  Serious: No
  Sender: FDA-Public Use
  Company Number: None

PATIENT
  Age: 37 Year
  Sex: Female

DRUGS (2)
  1. AMBIEN [Suspect]
     Indication: SLEEP DISORDER
     Dosage: NOT PROVIDED
  2. AMITRIPTYLINE [Suspect]
     Indication: SLEEP DISORDER
     Dosage: NOT PROVIDED, UNKNOWN

REACTIONS (1)
  - Drug ineffective [None]
